FAERS Safety Report 6040782-9 (Version None)
Quarter: 2009Q1

REPORT INFORMATION
  Report Type: 
  Country: None (occurrence: None)
  Receive Date: 20090116
  Receipt Date: 20080523
  Transmission Date: 20090719
  Serious: No
  Sender: FDA-Public Use
  Company Number: US-BRISTOL-MYERS SQUIBB COMPANY-14203558

PATIENT
  Age: 42 Year
  Sex: Male
  Weight: 113 kg

DRUGS (12)
  1. ABILIFY [Suspect]
     Indication: BIPOLAR DISORDER
  2. ABILIFY [Suspect]
     Indication: ANXIETY
  3. ZYPREXA [Concomitant]
     Indication: BIPOLAR DISORDER
  4. ZYPREXA [Concomitant]
     Indication: ANXIETY
  5. CELEBREX [Concomitant]
  6. PAXIL [Concomitant]
  7. CLONAZEPAM [Concomitant]
  8. NEURONTIN [Concomitant]
  9. LEVOTHYROXINE SODIUM [Concomitant]
  10. ALTACE [Concomitant]
  11. OMEPRAZOLE [Concomitant]
  12. ASPIRIN [Concomitant]

REACTIONS (2)
  - INSOMNIA [None]
  - WEIGHT DECREASED [None]
